FAERS Safety Report 9620947 (Version 2)
Quarter: 2013Q4

REPORT INFORMATION
  Report Type: Spontaneous
  Country: CH (occurrence: CH)
  Receive Date: 20131015
  Receipt Date: 20131015
  Transmission Date: 20140711
  Serious: Yes (Other)
  Sender: FDA-Public Use
  Company Number: PHHY2013CH084585

PATIENT
  Age: 46 Year
  Sex: Female

DRUGS (5)
  1. GILENYA [Suspect]
     Dosage: 0.5 MG, QD
     Route: 048
     Dates: start: 201306
  2. CIPRALEX                                /DEN/ [Concomitant]
  3. LAMICTAL [Concomitant]
  4. SEROQUEL [Concomitant]
  5. MIRTAZAPIN [Concomitant]

REACTIONS (5)
  - Memory impairment [Unknown]
  - Cognitive disorder [Unknown]
  - Depression [Not Recovered/Not Resolved]
  - Action tremor [Not Recovered/Not Resolved]
  - Fatigue [Not Recovered/Not Resolved]
